FAERS Safety Report 4883047-0 (Version None)
Quarter: 2005Q4

REPORT INFORMATION
  Report Type: 
  Country: None (occurrence: None)
  Receive Date: 20051201
  Receipt Date: 20050927
  Transmission Date: 20060501
  Serious: No
  Sender: FDA-Public Use
  Company Number: 2005PV002501

PATIENT
  Age: 70 Year
  Sex: Female
  Weight: 79.8331 kg

DRUGS (9)
  1. BYETTA [Suspect]
     Indication: DIABETES MELLITUS NON-INSULIN-DEPENDENT
     Dosage: 5 MCG;BID;SC
     Route: 058
     Dates: start: 20050918
  2. GLUCOPHAGE ^BRISTOL-MYERS SQIBB^ [Concomitant]
  3. CORGARD [Concomitant]
  4. ACIPHEX [Concomitant]
  5. ELAVIL [Concomitant]
  6. AVANDIA [Concomitant]
  7. GLUCOVANCE [Concomitant]
  8. NORVASC [Concomitant]
  9. ATIVAN [Concomitant]

REACTIONS (4)
  - BURNING SENSATION [None]
  - HYPOAESTHESIA [None]
  - PAIN IN EXTREMITY [None]
  - PARAESTHESIA [None]
